FAERS Safety Report 5958707-0 (Version None)
Quarter: 2008Q4

REPORT INFORMATION
  Report Type: 
  Country: None (occurrence: None)
  Receive Date: 20081119
  Receipt Date: 20081113
  Transmission Date: 20090506
  Serious: Yes (Other)
  Sender: FDA-Public Use
  Company Number: JP-ROXANE LABORATORIES, INC.-2008-RO-00226RO

PATIENT
  Age: 53 Year
  Sex: Female

DRUGS (7)
  1. METHOTREXATE [Suspect]
     Indication: ARTHRALGIA
  2. INFLIXIMAB [Suspect]
     Indication: ARTHRITIS
  3. RITUXIMAB [Concomitant]
     Indication: DIFFUSE LARGE B-CELL LYMPHOMA
  4. CICLOPHOSPHAMIDE [Concomitant]
     Indication: DIFFUSE LARGE B-CELL LYMPHOMA
  5. DOXORUBICIN HCL [Concomitant]
     Indication: DIFFUSE LARGE B-CELL LYMPHOMA
  6. VINCRISTINE [Concomitant]
     Indication: DIFFUSE LARGE B-CELL LYMPHOMA
  7. PREDNISONE TAB [Concomitant]
     Indication: DIFFUSE LARGE B-CELL LYMPHOMA

REACTIONS (3)
  - DIFFUSE LARGE B-CELL LYMPHOMA [None]
  - DRUG INEFFECTIVE [None]
  - METASTASES TO LIVER [None]
